FAERS Safety Report 5632202-0 (Version None)
Quarter: 2008Q1

REPORT INFORMATION
  Report Type: 
  Country: None (occurrence: None)
  Receive Date: 20080220
  Receipt Date: 20080212
  Transmission Date: 20080703
  Serious: Yes (Other)
  Sender: FDA-Public Use
  Company Number: FR-ASTRAZENECA-2008CG00242

PATIENT
  Age: 29952 Day
  Sex: Male

DRUGS (11)
  1. FLODIL LP [Suspect]
     Indication: HYPERTENSION
     Route: 048
     Dates: end: 20070917
  2. ZOLOFT [Suspect]
     Indication: DEPRESSION
     Route: 048
     Dates: end: 20070924
  3. ZOLOFT [Suspect]
     Route: 048
     Dates: start: 20070901, end: 20070101
  4. SERESTA [Suspect]
     Indication: ANXIETY
     Route: 048
  5. ALPRAZOLAM [Suspect]
     Indication: ANXIETY
     Route: 048
     Dates: end: 20070917
  6. DETENSIEL [Suspect]
     Indication: HYPERTENSION
     Route: 048
  7. IKOREL [Suspect]
     Indication: ANGINA PECTORIS
     Route: 048
  8. PLAVIX [Concomitant]
     Indication: ARTERIAL THROMBOSIS
     Route: 048
  9. PIASCLEDINE [Concomitant]
     Indication: OSTEOARTHRITIS
     Route: 048
     Dates: end: 20070917
  10. INIPOMP [Concomitant]
     Indication: GASTROOESOPHAGEAL REFLUX DISEASE
     Route: 048
  11. AERIUS [Concomitant]
     Indication: RHINITIS ALLERGIC
     Route: 048

REACTIONS (2)
  - HYPONATRAEMIA [None]
  - MALAISE [None]
